FAERS Safety Report 16355612 (Version 1)
Quarter: 2019Q2

REPORT INFORMATION
  Report Type: Report from Study
  Country: ZA (occurrence: ZA)
  Receive Date: 20190525
  Receipt Date: 20190525
  Transmission Date: 20190711
  Serious: Yes (Hospitalization)
  Sender: FDA-Public Use
  Company Number: PHHY2018ZA014671

PATIENT
  Age: 71 Year
  Sex: Female

DRUGS (2)
  1. ACLASTA [Suspect]
     Active Substance: ZOLEDRONIC ACID
     Dosage: 1 DF, Q12MO (5MG/100ML)
     Route: 042
     Dates: start: 2017
  2. ACLASTA [Suspect]
     Active Substance: ZOLEDRONIC ACID
     Indication: OSTEOPOROSIS
     Dosage: 1 DF (5 MG/100 ML), Q12MO
     Route: 041
     Dates: start: 2016

REACTIONS (4)
  - Shock [Unknown]
  - Stress [Unknown]
  - Pulmonary thrombosis [Unknown]
  - Depressed mood [Unknown]

NARRATIVE: CASE EVENT DATE: 201809
